FAERS Safety Report 11710597 (Version 2)
Quarter: 2015Q4

REPORT INFORMATION
  Report Type: Spontaneous
  Country: US (occurrence: US)
  Receive Date: 20151104
  Receipt Date: 20151110
  Transmission Date: 20160304
  Serious: No
  Sender: FDA-Public Use
  Company Number: US-ELI_LILLY_AND_COMPANY-US201108006545

PATIENT
  Age: 72 Year
  Sex: Female

DRUGS (5)
  1. FORTEO [Suspect]
     Active Substance: TERIPARATIDE
     Indication: OSTEOPOROSIS
     Dosage: 20 UG, QD
     Route: 058
     Dates: start: 20110717
  2. FORTEO [Suspect]
     Active Substance: TERIPARATIDE
     Dosage: 20 UG, QD
     Route: 058
  3. FORTEO [Suspect]
     Active Substance: TERIPARATIDE
     Dosage: 20 UG, QD
     Route: 058
  4. FORTEO [Suspect]
     Active Substance: TERIPARATIDE
     Dosage: 20 UG, QD
     Route: 058
  5. FORTEO [Suspect]
     Active Substance: TERIPARATIDE
     Dosage: 20 UG, QD
     Route: 058
     Dates: end: 201201

REACTIONS (16)
  - Intentional product misuse [Not Recovered/Not Resolved]
  - Pain [Recovering/Resolving]
  - Paraesthesia [Recovering/Resolving]
  - Tooth fracture [Unknown]
  - Gait disturbance [Recovering/Resolving]
  - Muscle spasms [Unknown]
  - Fatigue [Unknown]
  - Weight increased [Unknown]
  - Constipation [Not Recovered/Not Resolved]
  - Arthralgia [Unknown]
  - Malaise [Unknown]
  - Sensory disturbance [Unknown]
  - Abdominal distension [Unknown]
  - Muscular weakness [Unknown]
  - Muscular weakness [Recovering/Resolving]
  - Pain [Unknown]

NARRATIVE: CASE EVENT DATE: 2011
